FAERS Safety Report 14877253 (Version 2)
Quarter: 2018Q2

REPORT INFORMATION
  Report Type: Spontaneous
  Country: US (occurrence: US)
  Receive Date: 20180510
  Receipt Date: 20180521
  Transmission Date: 20180711
  Serious: Yes (Other)
  Sender: FDA-Public Use
  Company Number: US-PFIZER INC-2018192470

PATIENT
  Age: 82 Year
  Sex: Female

DRUGS (3)
  1. XELJANZ [Suspect]
     Active Substance: TOFACITINIB CITRATE
     Dosage: 5 MG, 2X/DAY
     Route: 048
  2. RESTASIS [Concomitant]
     Active Substance: CYCLOSPORINE
     Dosage: UNK UNK, DAILY
  3. MACRODANTIN [Concomitant]
     Active Substance: NITROFURANTOIN
     Dosage: UNK

REACTIONS (4)
  - Intestinal obstruction [Unknown]
  - Gastrointestinal perforation [Unknown]
  - Abdominal pain [Unknown]
  - Peritonitis [Unknown]

NARRATIVE: CASE EVENT DATE: 20161220
